FAERS Safety Report 17254053 (Version 3)
Quarter: 2025Q3

REPORT INFORMATION
  Report Type: Spontaneous
  Country: EU (occurrence: EU)
  Receive Date: 20200109
  Receipt Date: 20250728
  Transmission Date: 20251021
  Serious: Yes (Other)
  Sender: MYLAN
  Company Number: EU-PHARMATHEN-GPV2019PHT037587

PATIENT
  Age: 75 Year
  Sex: Female
  Weight: 45 kg

DRUGS (8)
  1. VORICONAZOLE [Suspect]
     Active Substance: VORICONAZOLE
     Indication: Cerebral aspergillosis
     Dosage: 400 MILLIGRAM, QD
  2. VORICONAZOLE [Suspect]
     Active Substance: VORICONAZOLE
     Dosage: 350 MILLIGRAM, BID. 700 MG, QD (8 MG/KG OF BODY WEIGHT B.I.D.)
  3. VORICONAZOLE [Suspect]
     Active Substance: VORICONAZOLE
  4. VORICONAZOLE [Suspect]
     Active Substance: VORICONAZOLE
     Indication: Cerebral aspergillosis
  5. OMEPRAZOLE [Interacting]
     Active Substance: OMEPRAZOLE
     Indication: Product used for unknown indication
  6. AMPHOTERICIN B [Concomitant]
     Active Substance: AMPHOTERICIN B
     Indication: Cerebral aspergillosis
  7. ISAVUCONAZOLE [Concomitant]
     Active Substance: ISAVUCONAZOLE
     Indication: Product used for unknown indication
     Dosage: 200 MILLIGRAM, QD
  8. ISAVUCONAZOLE [Concomitant]
     Active Substance: ISAVUCONAZOLE
     Dosage: 300 MILLIGRAM, QD

REACTIONS (6)
  - Drug level below therapeutic [Not Recovered/Not Resolved]
  - Hallucination, visual [Unknown]
  - Treatment failure [Recovered/Resolved]
  - Prescribed overdose [Unknown]
  - Off label use [Unknown]
  - Drug interaction [Unknown]
